FAERS Safety Report 5603906-0 (Version None)
Quarter: 2008Q1

REPORT INFORMATION
  Report Type: 
  Country: None (occurrence: None)
  Receive Date: 20080123
  Receipt Date: 20080115
  Transmission Date: 20080703
  Serious: Yes (Other)
  Sender: FDA-Public Use
  Company Number: 18197

PATIENT
  Age: 72 Year
  Sex: Male

DRUGS (6)
  1. CARBOPLATIN [Suspect]
     Indication: LUNG ADENOCARCINOMA STAGE IV
  2. GEFITINIB [Suspect]
     Indication: LUNG ADENOCARCINOMA STAGE IV
     Dosage: 250 MG DAILY PO
     Route: 048
  3. GEMCITABINE [Suspect]
     Indication: LUNG ADENOCARCINOMA STAGE IV
  4. STEROIDS [Concomitant]
  5. RADIOTHERAPY [Concomitant]
  6. OPIATES [Concomitant]

REACTIONS (5)
  - DRUG INTERACTION [None]
  - MYELODYSPLASTIC SYNDROME [None]
  - REFRACTORY ANAEMIA [None]
  - SPINAL CORD COMPRESSION [None]
  - THERAPEUTIC RESPONSE DECREASED [None]
